FAERS Safety Report 3821208 (Version 5)
Quarter: 2020Q3

REPORT INFORMATION
  Report Type: Report from Study
  Country: GB (occurrence: GB)
  Receive Date: 20020509
  Receipt Date: 20050815
  Transmission Date: 20201104
  Serious: Yes (Death, Life-Threatening, Hospitalization, Other)
  Sender: FDA-Public Use
  Company Number: EMADSS2002002462

PATIENT
  Age: 59 Year
  Sex: Female
  Weight: 91.4 kg

DRUGS (2)
  1. TOPIRAMATE. [Suspect]
     Active Substance: TOPIRAMATE
     Route: 048
     Dates: start: 20010116, end: 20020326
  2. PLACEBO [Suspect]
     Active Substance: UNSPECIFIED INGREDIENT
     Indication: OBESITY
     Route: 048
     Dates: start: 20010116, end: 20020326

REACTIONS (5)
  - Abdominal pain [Unknown]
  - Wound infection [Recovered/Resolved]
  - Sarcoma [Fatal]
  - Constipation [Unknown]
  - Neurofibrosarcoma [Not Recovered/Not Resolved]

NARRATIVE: CASE EVENT DATE: 20020509
